FAERS Safety Report 5431164-9 (Version None)
Quarter: 2007Q3

REPORT INFORMATION
  Report Type: 
  Country: None (occurrence: None)
  Receive Date: 20070830
  Receipt Date: 20070312
  Transmission Date: 20080115
  Serious: No
  Sender: FDA-Public Use
  Company Number: A0642828A

PATIENT
  Age: 55 Year
  Sex: Male

DRUGS (4)
  1. WELLBUTRIN XL [Suspect]
     Indication: DEPRESSION
     Dosage: 150MG PER DAY
     Route: 048
     Dates: start: 20060501
  2. ASPIRIN [Concomitant]
  3. MULTIVITAMIN [Concomitant]
  4. TESTOSTERONE [Concomitant]

REACTIONS (1)
  - AMNESIA [None]
